FAERS Safety Report 6070862-3 (Version None)
Quarter: 2009Q1

REPORT INFORMATION
  Report Type: 
  Country: None (occurrence: None)
  Receive Date: 20090209
  Receipt Date: 20081008
  Transmission Date: 20090719
  Serious: No
  Sender: FDA-Public Use
  Company Number: A0750953A

PATIENT
  Age: 47 Year
  Sex: Female

DRUGS (3)
  1. PAXIL [Suspect]
     Indication: FIBROMYALGIA
     Route: 048
     Dates: start: 20070501, end: 20070701
  2. NO CONCURRENT MEDICATION [Concomitant]
  3. PROZAC [Concomitant]
     Indication: FIBROMYALGIA
     Route: 048

REACTIONS (2)
  - PARAESTHESIA [None]
  - TINNITUS [None]
